FAERS Safety Report 9496218 (Version 1)
Quarter: 2013Q3

REPORT INFORMATION
  Report Type: Spontaneous
  Country: FR (occurrence: None)
  Receive Date: 20130829
  Receipt Date: 20130829
  Transmission Date: 20140515
  Serious: Yes (Hospitalization)
  Sender: FDA-Public Use
  Company Number: SYM-2013-09132

PATIENT
  Age: 90 Year
  Sex: Female

DRUGS (3)
  1. FLAGYL [Suspect]
     Indication: CHOLECYSTITIS
     Route: 048
     Dates: start: 20111023, end: 20111024
  2. METRONIDAZOLE [Suspect]
     Indication: CHOLECYSTITIS
     Route: 042
     Dates: start: 20111024, end: 20111028
  3. CEFTRIAXONE [Suspect]
     Indication: CHOLECYSTITIS
     Route: 042
     Dates: start: 20111023, end: 20111028

REACTIONS (2)
  - Rash erythematous [None]
  - Pruritus [None]
